FAERS Safety Report 6257387-7 (Version None)
Quarter: 2009Q3

REPORT INFORMATION
  Report Type: 
  Country: None (occurrence: None)
  Receive Date: 20090706
  Receipt Date: 20090626
  Transmission Date: 20100115
  Serious: Yes (Life-Threatening)
  Sender: FDA-Public Use
  Company Number: JP-MERCK-0906USA03482

PATIENT
  Age: 94 Year
  Sex: Male
  Weight: 44 kg

DRUGS (8)
  1. HYZAAR [Suspect]
     Indication: HYPERTENSION
     Route: 048
     Dates: start: 20090326, end: 20090408
  2. HYZAAR [Suspect]
     Indication: CARDIAC FAILURE CHRONIC
     Route: 048
     Dates: start: 20090326, end: 20090408
  3. THYRADIN-S [Concomitant]
     Indication: HYPOTHYROIDISM
     Route: 048
     Dates: start: 20080201
  4. NORVASC [Concomitant]
     Indication: HYPERTENSION
     Route: 048
     Dates: start: 20080201
  5. TAKEPRON [Concomitant]
     Route: 048
  6. FRANDOL [Concomitant]
     Indication: ARTERIOSCLEROSIS CORONARY ARTERY
     Route: 065
     Dates: start: 20080201
  7. BASEN [Concomitant]
     Indication: DIABETES MELLITUS
     Route: 065
     Dates: start: 20080201
  8. NOVORAPID [Concomitant]
     Indication: DIABETES MELLITUS
     Route: 058
     Dates: start: 20080201

REACTIONS (2)
  - INJURY [None]
  - SYNCOPE [None]
